FAERS Safety Report 10023100 (Version 1)
Quarter: 2014Q1

REPORT INFORMATION
  Report Type: Report from Study
  Country: BE (occurrence: BE)
  Receive Date: 20140319
  Receipt Date: 20140319
  Transmission Date: 20141002
  Serious: Yes (Other)
  Sender: FDA-Public Use
  Company Number: BE-ROCHE-1366749

PATIENT
  Age: 86 Year
  Sex: Female

DRUGS (5)
  1. TOCILIZUMAB [Suspect]
     Indication: RHEUMATOID ARTHRITIS
     Dosage: SINGLE DOSE
     Route: 042
     Dates: start: 20140115, end: 20140115
  2. ALLOPURINOL [Concomitant]
     Indication: HYPERURICAEMIA
     Route: 048
  3. EMCORETIC [Concomitant]
     Indication: HYPERTENSION
     Route: 048
  4. TOLINDOL [Concomitant]
     Indication: RHEUMATOID ARTHRITIS
     Route: 048
  5. ASAFLOW [Concomitant]
     Indication: ARTERIOSCLEROSIS
     Route: 048

REACTIONS (1)
  - Transient ischaemic attack [Recovered/Resolved]
